FAERS Safety Report 24855296 (Version 2)
Quarter: 2025Q1

REPORT INFORMATION
  Report Type: Spontaneous
  Country: US (occurrence: US)
  Receive Date: 20250117
  Receipt Date: 20250122
  Transmission Date: 20250409
  Serious: Yes (Hospitalization)
  Sender: RIGEL PHARMACEUTICALS
  Company Number: US-RIGEL Pharmaceuticals, INC-20250100073

PATIENT
  Sex: Male

DRUGS (1)
  1. TAVALISSE [Suspect]
     Active Substance: FOSTAMATINIB
     Indication: Immune thrombocytopenia
     Dosage: 100 MG, BID
     Route: 048
     Dates: start: 20241230

REACTIONS (6)
  - Platelet count decreased [Unknown]
  - Melaena [Unknown]
  - Red blood cell count decreased [Unknown]
  - Sleep disorder [Unknown]
  - Platelet count [Unknown]
  - Dyspnoea [Unknown]
